FAERS Safety Report 4555909-5 (Version None)
Quarter: 2005Q1

REPORT INFORMATION
  Report Type: 
  Country: None (occurrence: None)
  Receive Date: 20050119
  Receipt Date: 20041105
  Transmission Date: 20050727
  Serious: Yes (Other)
  Sender: FDA-Public Use
  Company Number: US-MERCK-0411USA00895

PATIENT
  Age: 41 Year
  Sex: Female
  Weight: 48 kg

DRUGS (5)
  1. VIOXX [Suspect]
     Indication: ARTHRITIS
     Route: 048
     Dates: start: 20030701, end: 20040930
  2. XANAX [Concomitant]
     Indication: ANXIETY
     Route: 048
     Dates: start: 20030101
  3. RELPAX [Concomitant]
     Indication: MIGRAINE
     Route: 048
     Dates: start: 20040101
  4. LORTAB [Concomitant]
     Indication: ARTHRITIS
     Route: 048
     Dates: start: 20030101
  5. HORMONAL CONTRACEPTIVES (UNSPECIFIED) [Concomitant]
     Route: 048

REACTIONS (8)
  - ANGINA PECTORIS [None]
  - BLOOD PRESSURE INCREASED [None]
  - FATIGUE [None]
  - GENERALISED OEDEMA [None]
  - MIGRAINE [None]
  - PAIN IN EXTREMITY [None]
  - PAIN IN JAW [None]
  - PARAESTHESIA [None]
